FAERS Safety Report 4862435-2 (Version None)
Quarter: 2005Q4

REPORT INFORMATION
  Report Type: 
  Country: None (occurrence: None)
  Receive Date: 20051221
  Receipt Date: 20051209
  Transmission Date: 20060501
  Serious: Yes (Other)
  Sender: FDA-Public Use
  Company Number: CA-BRISTOL-MYERS SQUIBB COMPANY-13220827

PATIENT
  Age: 85 Year
  Sex: Female

DRUGS (15)
  1. TEQUIN [Suspect]
     Route: 048
  2. ADVAIR DISKUS 250/50 [Concomitant]
  3. CARDIZEM [Concomitant]
  4. COUMADIN [Concomitant]
  5. COVERSYL [Concomitant]
  6. DIDROCAL [Concomitant]
  7. DOMPERIDONE [Concomitant]
  8. IRON SULFATETHIAMIN COMPOUND TAB [Concomitant]
  9. LASIX [Concomitant]
  10. PREDNISONE TAB [Concomitant]
  11. SOLU-MEDROL [Concomitant]
  12. SPIRIVA [Concomitant]
  13. THEO-DUR [Concomitant]
  14. VENTOLIN [Concomitant]
  15. ZANTAC [Concomitant]

REACTIONS (1)
  - HYPERGLYCAEMIA [None]
